FAERS Safety Report 8921740 (Version 1)
Quarter: 2012Q4

REPORT INFORMATION
  Report Type: 
  Country: US (occurrence: US)
  Receive Date: 20121121
  Receipt Date: 20121121
  Transmission Date: 20130627
  Serious: Yes (Other)
  Sender: FDA-Public Use
  Company Number: US-JNJFOC-20121108780

PATIENT
  Sex: Female
  Weight: 88 kg

DRUGS (10)
  1. XARELTO [Suspect]
     Indication: CEREBROVASCULAR ACCIDENT PROPHYLAXIS
     Route: 048
     Dates: start: 201204
  2. XARELTO [Suspect]
     Indication: ATRIAL FIBRILLATION
     Route: 048
     Dates: start: 201204
  3. ATENOLOL [Concomitant]
     Indication: BLOOD PRESSURE
     Route: 048
  4. TAMBOCOR [Concomitant]
     Indication: CARDIAC DISORDER
     Route: 048
     Dates: start: 201203
  5. GLIPIZIDE [Concomitant]
     Indication: BLOOD GLUCOSE ABNORMAL
     Route: 048
     Dates: start: 2009
  6. WELCHOL [Concomitant]
     Indication: HIGH DENSITY LIPOPROTEIN
     Route: 048
     Dates: start: 2006
  7. FENOFIBRATE [Concomitant]
     Indication: BLOOD TRIGLYCERIDES
     Route: 048
     Dates: start: 2008
  8. OMEPRAZOLE [Concomitant]
     Indication: GASTROOESOPHAGEAL REFLUX DISEASE
     Route: 048
     Dates: start: 2008
  9. MAGNESIUM OXIDE [Concomitant]
     Indication: HIGH DENSITY LIPOPROTEIN
     Route: 048
     Dates: start: 201203
  10. METAMUCIL [Concomitant]
     Indication: CONSTIPATION
     Route: 048

REACTIONS (7)
  - Epistaxis [Recovered/Resolved]
  - Eye swelling [Recovered/Resolved]
  - Swollen tongue [Recovered/Resolved]
  - Dyspnoea [Recovered/Resolved]
  - Oedema mouth [Recovered/Resolved]
  - Headache [Not Recovered/Not Resolved]
  - Sinus disorder [Not Recovered/Not Resolved]
